FAERS Safety Report 12822469 (Version 1)
Quarter: 2016Q4

REPORT INFORMATION
  Report Type: Spontaneous
  Country: US (occurrence: US)
  Receive Date: 20161006
  Receipt Date: 20161006
  Transmission Date: 20170207
  Serious: Yes (Disabling)
  Sender: FDA-Public Use
  Company Number: None

PATIENT
  Age: 31 Year
  Sex: Female
  Weight: 58.06 kg

DRUGS (4)
  1. PARAGARD T 380A [Suspect]
     Active Substance: COPPER
     Dates: start: 20160617, end: 20160916
  2. PROBIOTIC [Concomitant]
     Active Substance: PROBIOTICS NOS
  3. IRON [Concomitant]
     Active Substance: IRON
  4. MULTI-VITAMIN [Concomitant]
     Active Substance: .ALPHA.-TOCOPHEROL ACETATE, DL-\ASCORBIC ACID\CYANOCOBALAMIN\FLUORIDE ION\FOLIC ACID\NIACIN\PYRIDOXINE\RIBOFLAVIN\THIAMINE\VITAMIN A\VITAMIN D

REACTIONS (13)
  - Depressed mood [None]
  - Paranoia [None]
  - Parosmia [None]
  - Headache [None]
  - Insomnia [None]
  - Food craving [None]
  - Memory impairment [None]
  - Mental disorder [None]
  - Alcoholism [None]
  - Anxiety [None]
  - Mood swings [None]
  - Fatigue [None]
  - Muscle spasms [None]

NARRATIVE: CASE EVENT DATE: 20160630
